FAERS Safety Report 14174449 (Version 2)
Quarter: 2018Q3

REPORT INFORMATION
  Report Type: Report from Study
  Country: US (occurrence: US)
  Receive Date: 20171109
  Receipt Date: 20180928
  Transmission Date: 20181010
  Serious: Yes (Other)
  Sender: FDA-Public Use
  Company Number: US-SA-2016SA004568

PATIENT
  Age: 37 Year
  Sex: Female

DRUGS (9)
  1. VESICARE [Concomitant]
     Active Substance: SOLIFENACIN SUCCINATE
  2. FISH OIL [Concomitant]
     Active Substance: FISH OIL
  3. ALEMTUZUMAB [Suspect]
     Active Substance: ALEMTUZUMAB
     Indication: MULTIPLE SCLEROSIS
     Dosage: 12 MG,QD
     Route: 041
     Dates: start: 20150330, end: 20150404
  4. VIT C NOS [Concomitant]
  5. VITAMIN B NOS [Concomitant]
     Active Substance: VITAMIN B
  6. VITAMIN D [Concomitant]
     Active Substance: CHOLECALCIFEROL
  7. PROZAC [Concomitant]
     Active Substance: FLUOXETINE HYDROCHLORIDE
     Dosage: 20 MG, UNK
  8. ALEMTUZUMAB [Suspect]
     Active Substance: ALEMTUZUMAB
     Dosage: 12 MG,QD
     Route: 041
     Dates: start: 20160420, end: 20160422
  9. ALEMTUZUMAB [Suspect]
     Active Substance: ALEMTUZUMAB
     Dosage: UNK

REACTIONS (7)
  - Neoplasm malignant [Unknown]
  - Lethargy [Recovered/Resolved]
  - Weight decreased [Unknown]
  - Pain [Recovered/Resolved]
  - Gastroenteritis viral [Recovered/Resolved]
  - Fatigue [Recovered/Resolved]
  - Nausea [Recovered/Resolved]

NARRATIVE: CASE EVENT DATE: 2015
